FAERS Safety Report 8005275-8 (Version None)
Quarter: 2011Q4

REPORT INFORMATION
  Report Type: 
  Country: None (occurrence: None)
  Receive Date: 20111223
  Receipt Date: 20111219
  Transmission Date: 20120403
  Serious: Yes (Disabling)
  Sender: FDA-Public Use
  Company Number: DE-SANOFI-AVENTIS-2011SA082917

PATIENT
  Age: 86 Year
  Sex: Female

DRUGS (4)
  1. BETA BLOCKING AGENTS [Concomitant]
     Route: 065
  2. SOTALOL HCL [Concomitant]
     Route: 065
  3. MULTAQ [Suspect]
     Route: 048
     Dates: end: 20111101
  4. ACETYLSALICYLIC ACID SRT [Concomitant]
     Route: 065

REACTIONS (6)
  - NERVOUS SYSTEM DISORDER [None]
  - LIMB DISCOMFORT [None]
  - LIMB REDUCTION DEFECT [None]
  - MUSCLE SPASMS [None]
  - GAIT DISTURBANCE [None]
  - FATIGUE [None]
